FAERS Safety Report 25378260 (Version 1)
Quarter: 2025Q2

REPORT INFORMATION
  Report Type: Spontaneous
  Country: US (occurrence: US)
  Receive Date: 20250530
  Receipt Date: 20250530
  Transmission Date: 20250716
  Serious: Yes (Other)
  Sender: TAKEDA
  Company Number: US-TAKEDA-2025TUS049178

PATIENT
  Sex: Female
  Weight: 73 kg

DRUGS (2)
  1. ENTYVIO [Suspect]
     Active Substance: VEDOLIZUMAB
     Indication: Crohn^s disease
  2. ANASTROZOLE [Concomitant]
     Active Substance: ANASTROZOLE
     Indication: Chemotherapy

REACTIONS (1)
  - Breast cancer recurrent [Unknown]
